FAERS Safety Report 8292632-8 (Version None)
Quarter: 2012Q2

REPORT INFORMATION
  Report Type: 
  Country: None (occurrence: None)
  Receive Date: 20120417
  Receipt Date: 20110711
  Transmission Date: 20120825
  Serious: No
  Sender: FDA-Public Use
  Company Number: US-ASTRAZENECA-2011SE41528

PATIENT

DRUGS (1)
  1. NEXIUM [Suspect]
     Dosage: TWICE A DAY
     Route: 048
     Dates: start: 20070101

REACTIONS (1)
  - OSTEOPOROSIS [None]
